FAERS Safety Report 25191102 (Version 1)
Quarter: 2025Q2

REPORT INFORMATION
  Report Type: Spontaneous
  Country: US (occurrence: US)
  Receive Date: 20250411
  Receipt Date: 20250411
  Transmission Date: 20250716
  Serious: No
  Sender: CALLIDITAS THERAPEUTICS
  Company Number: US-Calliditas-2024CAL02849

PATIENT
  Age: 35 Year
  Sex: Male

DRUGS (1)
  1. TARPEYO [Suspect]
     Active Substance: BUDESONIDE
     Indication: Chronic kidney disease
     Route: 048
     Dates: start: 20241109

REACTIONS (4)
  - Product dose omission issue [Unknown]
  - Tremor [Unknown]
  - Malaise [Unknown]
  - White blood cell count increased [Unknown]
